FAERS Safety Report 7816763-9 (Version None)
Quarter: 2011Q4

REPORT INFORMATION
  Report Type: 
  Country: None (occurrence: None)
  Receive Date: 20111017
  Receipt Date: 20111005
  Transmission Date: 20120403
  Serious: Yes (Hospitalization)
  Sender: FDA-Public Use
  Company Number: US-ACTELION-A-US2011-55008

PATIENT
  Age: 22 Year
  Sex: Male
  Weight: 59 kg

DRUGS (13)
  1. EPOPROSTENOL SODIUM [Suspect]
     Indication: PULMONARY ARTERIAL HYPERTENSION
     Dosage: 17 NG/KG, PER MIN
     Route: 042
     Dates: start: 20110107
  2. LISINOPRIL [Concomitant]
  3. SPIRONOLACTONE [Concomitant]
  4. LASIX [Concomitant]
  5. EPOPROSTENOL SODIUM [Suspect]
     Dosage: 12 NG/KG, PER MIN
     Route: 042
  6. TRACLEER [Concomitant]
     Indication: PULMONARY ARTERIAL HYPERTENSION
  7. CARVEDILOL [Concomitant]
  8. MILRINONE [Concomitant]
  9. REVATIO [Concomitant]
  10. DIGOXIN [Concomitant]
  11. MULTI-VITAMIN [Concomitant]
  12. WARFARIN SODIUM [Concomitant]
  13. COENZYME Q10 [Concomitant]

REACTIONS (6)
  - LUNG CONSOLIDATION [None]
  - ASPIRATION PLEURAL CAVITY [None]
  - LEFT VENTRICULAR FAILURE [None]
  - CONDITION AGGRAVATED [None]
  - LUNG INFILTRATION [None]
  - PLEURAL EFFUSION [None]
